FAERS Safety Report 4683268-6 (Version None)
Quarter: 2005Q2

REPORT INFORMATION
  Report Type: 
  Country: None (occurrence: None)
  Receive Date: 20050602
  Receipt Date: 20050314
  Transmission Date: 20051028
  Serious: No
  Sender: FDA-Public Use
  Company Number: USA050393180

PATIENT
  Age: 35 Year
  Sex: Female

DRUGS (4)
  1. CYMBALTA [Suspect]
     Indication: DEPRESSION
     Dosage: 60 MG DAY
     Dates: start: 20040901
  2. DECONGESTANT [Concomitant]
  3. ANTIBIOTIC [Concomitant]
  4. ALEVE [Concomitant]

REACTIONS (6)
  - BRADYPHRENIA [None]
  - FEELING ABNORMAL [None]
  - HALLUCINATION, VISUAL [None]
  - PARAESTHESIA [None]
  - PHARYNGITIS [None]
  - TONGUE DISORDER [None]
